FAERS Safety Report 9524688 (Version 1)
Quarter: 2013Q3

REPORT INFORMATION
  Report Type: Spontaneous
  Country: FR (occurrence: FR)
  Receive Date: 20130916
  Receipt Date: 20130916
  Transmission Date: 20140515
  Serious: Yes (Other)
  Sender: FDA-Public Use
  Company Number: PHHY2013FR101120

PATIENT
  Age: 85 Year
  Sex: Female

DRUGS (15)
  1. ACLASTA [Suspect]
     Dosage: 5 MG
     Route: 042
     Dates: start: 2009
  2. ACLASTA [Suspect]
     Dosage: 5 MG
     Route: 042
     Dates: start: 20110409
  3. LASILIX [Concomitant]
     Dosage: UNK
     Route: 048
  4. CARDIAMED [Concomitant]
     Dosage: UNK
     Route: 048
  5. KARDEGIC [Concomitant]
     Dosage: UNK
     Route: 048
  6. DOLIPRANE [Concomitant]
     Route: 048
  7. INEXIUM//ESOMEPRAZOLE MAGNESIUM [Concomitant]
     Dosage: UNK
     Route: 048
  8. NILEVAR [Concomitant]
     Dosage: UNK
     Route: 048
  9. ATARAX [Concomitant]
     Dosage: UNK
     Route: 048
  10. CARDENSIEL [Concomitant]
     Dosage: UNK
  11. SPECIAFOLDINE [Concomitant]
     Dosage: UNK
  12. INEXIUM//ESOMEPRAZOLE MAGNESIUM [Concomitant]
     Dosage: UNK
  13. CALTRATE [Concomitant]
     Dosage: UNK
  14. MULTICROM [Concomitant]
     Dosage: UNK
  15. FORLAX [Concomitant]
     Dosage: UNK

REACTIONS (4)
  - Cholestasis [Recovered/Resolved]
  - Malaise [Recovered/Resolved]
  - Chills [Recovered/Resolved]
  - Asthenia [Recovered/Resolved]
